FAERS Safety Report 21030114 (Version 1)
Quarter: 2022Q3

REPORT INFORMATION
  Report Type: Spontaneous
  Country: US (occurrence: None)
  Receive Date: 20220701
  Receipt Date: 20220701
  Transmission Date: 20221027
  Serious: No
  Sender: FDA-Public Use
  Company Number: US-ROCHE-2977857

PATIENT
  Sex: Male

DRUGS (13)
  1. ACTEMRA [Suspect]
     Active Substance: TOCILIZUMAB
     Indication: Giant cell arteritis
     Dosage: INJECT 0.9ML (162MG) TOTAL SUBCUTANEOUS EVERY SEVEN DAYS
     Route: 058
     Dates: start: 202111
  2. ACTEMRA [Suspect]
     Active Substance: TOCILIZUMAB
  3. ATORVASTATIN [Concomitant]
     Active Substance: ATORVASTATIN
  4. CALCIUM [Concomitant]
     Active Substance: CALCIUM
     Dosage: 500-600M
  5. ESOMEPRAZOLE [Concomitant]
     Active Substance: ESOMEPRAZOLE
     Dosage: CPD 40MG
  6. LISINOPRIL H [Concomitant]
     Dosage: TAB 10-12.5M
  7. MECLIZINE HYDROCHLORIDE [Concomitant]
     Active Substance: MECLIZINE HYDROCHLORIDE
  8. METOPROLOL [Concomitant]
     Active Substance: METOPROLOL
  9. OXYCODONE [Concomitant]
     Active Substance: OXYCODONE
     Dosage: AC TAB 7.5-325M
  10. PREDNISONE [Concomitant]
     Active Substance: PREDNISONE
  11. PREGABALIN [Concomitant]
     Active Substance: PREGABALIN
  12. SYMBICORT [Concomitant]
     Active Substance: BUDESONIDE\FORMOTEROL FUMARATE DIHYDRATE
     Dosage: AER160-4.5MCG
  13. XARELTO [Concomitant]
     Active Substance: RIVAROXABAN

REACTIONS (2)
  - Swelling face [Recovered/Resolved]
  - Pain in jaw [Recovered/Resolved]
